FAERS Safety Report 15106003 (Version 2)
Quarter: 2019Q2

REPORT INFORMATION
  Report Type: Spontaneous
  Country: LK (occurrence: LK)
  Receive Date: 20180704
  Receipt Date: 20190401
  Transmission Date: 20190711
  Serious: Yes (Hospitalization, Other)
  Sender: FDA-Public Use
  Company Number: LK-LUPIN PHARMACEUTICALS INC.-2018-04687

PATIENT
  Age: 9 Year
  Sex: Male

DRUGS (8)
  1. SERTRALINE [Suspect]
     Active Substance: SERTRALINE HYDROCHLORIDE
     Dosage: 50 MG, UNK (INCREASED TO 50MG,  2 WEEKS LATER)
     Route: 065
     Dates: start: 2017, end: 2017
  2. RISPERIDONE. [Suspect]
     Active Substance: RISPERIDONE
     Dosage: 2 MG, BID (INCREASED TO 2MG TWICE DAILY)
     Route: 065
  3. RISPERIDONE. [Suspect]
     Active Substance: RISPERIDONE
     Indication: MANIA
     Dosage: UNK
     Route: 065
  4. SODIUM VALPROATE [Concomitant]
     Active Substance: VALPROATE SODIUM
     Dosage: 200 MG, BID (DOSE INCREASED UP TO 200MG TWICE DAILY)
     Route: 065
  5. OLANZAPINE. [Suspect]
     Active Substance: OLANZAPINE
     Indication: MANIA
     Dosage: UNK (INITIAL DOSE)
     Route: 065
  6. OLANZAPINE. [Suspect]
     Active Substance: OLANZAPINE
     Dosage: 5 MG, BID (INCREASING OLANZAPINE TO 5MG TWICE DAILY)
     Route: 065
  7. SERTRALINE [Suspect]
     Active Substance: SERTRALINE HYDROCHLORIDE
     Indication: DEPRESSION
     Dosage: 25 MG, QD (MANE (MORNING)
     Route: 065
     Dates: start: 2017, end: 2017
  8. SODIUM VALPROATE [Concomitant]
     Active Substance: VALPROATE SODIUM
     Indication: BIPOLAR DISORDER
     Dosage: UNK (INITIAL DOSE)
     Route: 065

REACTIONS (3)
  - Extrapyramidal disorder [Unknown]
  - Weight increased [Unknown]
  - Mania [Recovering/Resolving]

NARRATIVE: CASE EVENT DATE: 2017
